FAERS Safety Report 8369904-1 (Version None)
Quarter: 2012Q2

REPORT INFORMATION
  Report Type: 
  Country: None (occurrence: None)
  Receive Date: 20120518
  Receipt Date: 20120510
  Transmission Date: 20120825
  Serious: Yes (Hospitalization)
  Sender: FDA-Public Use
  Company Number: JP-B.I. PHARMACEUTICALS,INC./RIDGEFIELD-2011-BP-28225NB

PATIENT
  Sex: Female
  Weight: 52.4 kg

DRUGS (9)
  1. DILTIAZEM HCL [Concomitant]
     Indication: CARDIAC FAILURE CHRONIC
     Dosage: 200 MG
     Route: 048
     Dates: start: 20070708
  2. SINGULAIR [Concomitant]
     Indication: ASTHMA
     Dosage: 10 MG
     Route: 048
     Dates: start: 20070627
  3. LASIX [Concomitant]
     Indication: CARDIAC FAILURE CHRONIC
     Dosage: 40 MG
     Route: 048
     Dates: start: 20070706
  4. TANATRIL [Concomitant]
     Indication: CARDIAC FAILURE CHRONIC
     Dosage: 7.5 MG
     Route: 048
     Dates: start: 20070710
  5. ASPARA POTASSIUM [Concomitant]
     Indication: HYPOKALAEMIA
     Dosage: 900 MG
     Route: 048
     Dates: start: 20110401, end: 20110601
  6. PRADAXA [Suspect]
     Indication: ATRIAL FIBRILLATION
     Dosage: 220 MG
     Route: 048
     Dates: start: 20110510, end: 20110530
  7. YODEL-S [Concomitant]
     Indication: CONSTIPATION
     Dosage: 240 MG
     Route: 048
     Dates: start: 20070705
  8. PROTECADIN [Concomitant]
     Indication: GASTRITIS
     Dosage: 10 MG
     Route: 048
     Dates: start: 20070705, end: 20110601
  9. ALDACTONE [Concomitant]
     Indication: CARDIAC FAILURE CHRONIC
     Dosage: 50 MG
     Route: 048
     Dates: start: 20070712

REACTIONS (2)
  - BLADDER NEOPLASM [None]
  - URINARY BLADDER HAEMORRHAGE [None]
